FAERS Safety Report 17034727 (Version 2)
Quarter: 2020Q1

REPORT INFORMATION
  Report Type: Spontaneous
  Country: US (occurrence: US)
  Receive Date: 20191115
  Receipt Date: 20200117
  Transmission Date: 20200409
  Serious: Yes (Hospitalization, Other)
  Sender: FDA-Public Use
  Company Number: US-009507513-1911USA003873

PATIENT
  Sex: Male

DRUGS (1)
  1. KEYTRUDA [Suspect]
     Active Substance: PEMBROLIZUMAB
     Dosage: UNK
     Route: 042
     Dates: start: 201905

REACTIONS (7)
  - Pneumonia [Unknown]
  - Adrenal insufficiency [Unknown]
  - Pruritus [Not Recovered/Not Resolved]
  - Somnolence [Unknown]
  - Loss of consciousness [Unknown]
  - Poor quality sleep [Not Recovered/Not Resolved]
  - Dehydration [Unknown]

NARRATIVE: CASE EVENT DATE: 2019
